FAERS Safety Report 9393526 (Version 2)
Quarter: 2013Q3

REPORT INFORMATION
  Report Type: Spontaneous
  Country: US (occurrence: US)
  Receive Date: 20130710
  Receipt Date: 20130715
  Transmission Date: 20140515
  Serious: Yes (Hospitalization)
  Sender: FDA-Public Use
  Company Number: US-BRISTOL-MYERS SQUIBB COMPANY-19072883

PATIENT
  Age: 51 Year
  Sex: Male

DRUGS (3)
  1. KOMBIGLYZE XR [Suspect]
     Indication: DIABETES MELLITUS
     Dosage: 1 AT NIGHT
     Route: 048
     Dates: start: 20130620
  2. METFORMIN HCL [Suspect]
  3. GLIMEPIRIDE [Suspect]

REACTIONS (3)
  - Pancreatic neoplasm [Unknown]
  - Metastases to liver [Unknown]
  - Ascites [Unknown]
